FAERS Safety Report 6765579-3 (Version None)
Quarter: 2010Q2

REPORT INFORMATION
  Report Type: 
  Country: None (occurrence: None)
  Receive Date: 20100611
  Receipt Date: 20100607
  Transmission Date: 20101027
  Serious: Yes (Death)
  Sender: FDA-Public Use
  Company Number: JP-BRACCO-003533

PATIENT
  Sex: Male

DRUGS (2)
  1. IOPAMIDOL [Suspect]
     Indication: COMPUTERISED TOMOGRAM
     Dosage: 3 ML/SEC FOR 33 SECONDS
     Route: 042
     Dates: start: 20100518, end: 20100518
  2. IOPAMIDOL [Suspect]
     Indication: HEPATIC NEOPLASM MALIGNANT
     Dosage: 3 ML/SEC FOR 33 SECONDS
     Route: 042
     Dates: start: 20100518, end: 20100518

REACTIONS (3)
  - ANAPHYLACTIC SHOCK [None]
  - INTERSTITIAL LUNG DISEASE [None]
  - RENAL FAILURE ACUTE [None]
